FAERS Safety Report 25989632 (Version 1)
Quarter: 2025Q4

REPORT INFORMATION
  Report Type: Spontaneous
  Country: US (occurrence: None)
  Receive Date: 20251031
  Receipt Date: 20251031
  Transmission Date: 20260117
  Serious: Yes (Hospitalization)
  Sender: FDA-CTU
  Company Number: None

PATIENT
  Sex: Male

DRUGS (3)
  1. ADYNOVATE [Suspect]
     Active Substance: ANTIHEMOPHILIC FACTOR, HUMAN RECOMBINANT
     Indication: Factor VIII deficiency
     Dosage: FREQUENCY : DAILY;?STRENGTH: 500
     Route: 042
     Dates: start: 20210810
  2. ADYNOVATE [Suspect]
     Active Substance: ANTIHEMOPHILIC FACTOR, HUMAN RECOMBINANT
     Indication: Factor VIII deficiency
     Dosage: FREQUENCY : DAILY;?STRENGTH: 1000
     Route: 042
     Dates: start: 20210810
  3. SODIUM CHLOR POSIFLUSH (5ML) [Concomitant]

REACTIONS (1)
  - Post procedural haemorrhage [None]
